FAERS Safety Report 17766168 (Version 3)
Quarter: 2020Q2

REPORT INFORMATION
  Report Type: Spontaneous
  Country: US (occurrence: US)
  Receive Date: 20200511
  Receipt Date: 20200518
  Transmission Date: 20200714
  Serious: Yes (Other)
  Sender: FDA-Public Use
  Company Number: US-AMGEN-USASP2020073659

PATIENT
  Age: 80 Year
  Sex: Female

DRUGS (1)
  1. REPATHA [Suspect]
     Active Substance: EVOLOCUMAB
     Indication: BLOOD CHOLESTEROL INCREASED
     Dosage: 140 MILLIGRAM, Q2WK
     Route: 065
     Dates: start: 2017

REACTIONS (6)
  - Injection site pain [Unknown]
  - Fatigue [Unknown]
  - Rhinorrhoea [Unknown]
  - Pneumonia [Unknown]
  - Device difficult to use [Unknown]
  - Injection site mass [Unknown]

NARRATIVE: CASE EVENT DATE: 20200502
